FAERS Safety Report 19583582 (Version 1)
Quarter: 2021Q3

REPORT INFORMATION
  Report Type: Other
  Country: US (occurrence: US)
  Receive Date: 20210720
  Receipt Date: 20210720
  Transmission Date: 20211014
  Serious: Yes (Life-Threatening, Hospitalization, Other)
  Sender: FDA-Public Use
  Company Number: US-C B FLEET CO INC-202107-US-002389

PATIENT
  Age: 29 Year
  Sex: Female

DRUGS (1)
  1. GOODYS EXTRA STRENGTH [Suspect]
     Active Substance: ACETAMINOPHEN\ASPIRIN\CAFFEINE
     Indication: MIGRAINE
     Dosage: 5?10 PACKS DAILY FOR 10 YEARS
     Route: 048

REACTIONS (5)
  - Focal segmental glomerulosclerosis [Recovered/Resolved]
  - Intentional overdose [None]
  - Interstitial lung disease [Recovered/Resolved]
  - Toxicity to various agents [Recovered/Resolved]
  - Incorrect product administration duration [None]
